FAERS Safety Report 13518361 (Version 2)
Quarter: 2018Q1

REPORT INFORMATION
  Report Type: Report from Study
  Country: US (occurrence: US)
  Receive Date: 20170505
  Receipt Date: 20180227
  Transmission Date: 20180508
  Serious: Yes (Hospitalization)
  Sender: FDA-Public Use
  Company Number: US-SA-2017SA081325

PATIENT
  Age: 4 Year
  Sex: Male

DRUGS (1)
  1. LUMIZYME [Suspect]
     Active Substance: ALGLUCOSIDASE ALFA
     Indication: GLYCOGEN STORAGE DISEASE TYPE II
     Route: 042
     Dates: start: 20141216

REACTIONS (3)
  - Pneumonia [Unknown]
  - Muscular weakness [Unknown]
  - Immune system disorder [Unknown]

NARRATIVE: CASE EVENT DATE: 20170201
